FAERS Safety Report 6975564-4 (Version None)
Quarter: 2010Q3

REPORT INFORMATION
  Report Type: 
  Country: None (occurrence: None)
  Receive Date: 20100910
  Receipt Date: 20100907
  Transmission Date: 20110219
  Serious: No
  Sender: FDA-Public Use
  Company Number: US-BIOGENIDEC-2010BI030956

PATIENT
  Age: 46 Year
  Sex: Male

DRUGS (1)
  1. AVONEX [Suspect]
     Indication: MULTIPLE SCLEROSIS
     Route: 030
     Dates: start: 20010101

REACTIONS (5)
  - FALL [None]
  - HYPOAESTHESIA [None]
  - TEMPERATURE INTOLERANCE [None]
  - UPPER EXTREMITY MASS [None]
  - WRIST FRACTURE [None]
